FAERS Safety Report 11980974 (Version 1)
Quarter: 2016Q1

REPORT INFORMATION
  Report Type: Spontaneous
  Country: US (occurrence: US)
  Receive Date: 20160129
  Receipt Date: 20160129
  Transmission Date: 20160526
  Serious: Yes (Other)
  Sender: FDA-Public Use
  Company Number: US-BRISTOL-MYERS SQUIBB COMPANY-BMS-2016-002833

PATIENT
  Sex: Female
  Weight: 52.15 kg

DRUGS (1)
  1. KENALOG-40 [Suspect]
     Active Substance: TRIAMCINOLONE ACETONIDE
     Indication: ARTHROPOD BITE
     Dosage: UNK
     Route: 065
     Dates: start: 201510

REACTIONS (3)
  - Cardiac flutter [Unknown]
  - Skin ulcer [Unknown]
  - Menstruation irregular [Unknown]
